FAERS Safety Report 8893492 (Version 1)
Quarter: 2012Q4

REPORT INFORMATION
  Report Type: 
  Country: US (occurrence: US)
  Receive Date: 20121108
  Receipt Date: 20121108
  Transmission Date: 20130627
  Serious: Yes (Hospitalization)
  Sender: FDA-Public Use
  Company Number: US-JNJFOC-20121100314

PATIENT
  Sex: Male
  Weight: 78.02 kg

DRUGS (3)
  1. NUCYNTA IR [Suspect]
     Indication: ARTHRALGIA
     Route: 048
     Dates: start: 2012, end: 2012
  2. CELEBREX [Concomitant]
     Indication: NEURALGIA
     Route: 048
  3. LYRICA [Concomitant]
     Indication: PAIN
     Route: 048

REACTIONS (5)
  - Renal failure acute [Unknown]
  - Dysuria [Not Recovered/Not Resolved]
  - Oedema peripheral [Unknown]
  - Weight increased [Recovering/Resolving]
  - Constipation [Recovering/Resolving]
